FAERS Safety Report 6651178-0 (Version None)
Quarter: 2010Q1

REPORT INFORMATION
  Report Type: 
  Country: None (occurrence: None)
  Receive Date: 20100325
  Receipt Date: 20100210
  Transmission Date: 20100710
  Serious: No
  Sender: FDA-Public Use
  Company Number: US-BAYER-201014825NA

PATIENT
  Age: 43 Year
  Sex: Female
  Weight: 58 kg

DRUGS (2)
  1. ULTRAVIST (PHARMACY BULK) [Suspect]
     Indication: ABDOMINAL PAIN LOWER
     Dosage: AS USED: 300 ML
     Route: 042
     Dates: start: 20100209, end: 20100209
  2. METFORMIN HCL [Concomitant]

REACTIONS (2)
  - PRURITUS [None]
  - SNEEZING [None]
